FAERS Safety Report 14716050 (Version 1)
Quarter: 2018Q2

REPORT INFORMATION
  Report Type: Spontaneous
  Country: DE (occurrence: DE)
  Receive Date: 20180404
  Receipt Date: 20180404
  Transmission Date: 20180711
  Serious: Yes (Congenital Anomaly, Other)
  Sender: FDA-Public Use
  Company Number: DE-MYLANLABS-2018M1020503

PATIENT
  Sex: Male

DRUGS (4)
  1. FOLIO FORTE [Concomitant]
     Active Substance: FOLIC ACID\VITAMINS
     Indication: PRODUCT USED FOR UNKNOWN INDICATION
     Dosage: MEDICATION WAS TAKEN BY THE MOTHER/PATIENT
     Route: 065
  2. L-THYROXIN                         /00068001/ [Concomitant]
     Active Substance: LEVOTHYROXINE
     Indication: HYPOTHYROIDISM
  3. MARCUMAR [Concomitant]
     Active Substance: PHENPROCOUMON
     Indication: HYPERCOAGULATION
     Dosage: DAILY DOSE: 3 MG MILLIGRAM(S) EVERY DAY
     Dates: start: 20040701
  4. CITALOPRAM [Suspect]
     Active Substance: CITALOPRAM HYDROBROMIDE
     Indication: ANXIETY DISORDER
     Dosage: THE SUSPECT MEDICATION WAS TAKEN BY THE FATHER.
     Route: 064
     Dates: start: 20110801, end: 20151001

REACTIONS (2)
  - Paternal exposure timing unspecified [Recovered/Resolved]
  - Foetal chromosome abnormality [Recovered/Resolved]
